FAERS Safety Report 8790809 (Version 1)
Quarter: 2012Q4

REPORT INFORMATION
  Report Type: Spontaneous
  Country: US (occurrence: None)
  Receive Date: 20120906
  Receipt Date: 20120906
  Transmission Date: 20130627
  Serious: Yes (Life-Threatening)
  Sender: FDA-Public Use
  Company Number: 100502-000020

PATIENT
  Age: 34 Year
  Sex: Female

DRUGS (6)
  1. PROACTIV RENEWING CLEANSER [Suspect]
     Indication: ACNE
     Route: 061
     Dates: start: 20100413
  2. PROACTIV REPAIRING TREATMENT [Suspect]
     Indication: ACNE
     Route: 061
     Dates: start: 20100413
  3. PROACTIV REFINING MASK [Suspect]
     Indication: ACNE
     Route: 061
     Dates: start: 20100413
  4. HALDOL [Concomitant]
  5. ARTANE [Concomitant]
  6. KLONOPIN [Concomitant]

REACTIONS (6)
  - Urticaria [None]
  - Oedema peripheral [None]
  - Lip swelling [None]
  - Swelling face [None]
  - Lung disorder [None]
  - Oedema peripheral [None]
